FAERS Safety Report 6335028-8 (Version None)
Quarter: 2009Q3

REPORT INFORMATION
  Report Type: 
  Country: None (occurrence: None)
  Receive Date: 20090831
  Receipt Date: 20090821
  Transmission Date: 20100115
  Serious: Yes (Hospitalization)
  Sender: FDA-Public Use
  Company Number: US-AMGEN-US361214

PATIENT
  Sex: Male

DRUGS (1)
  1. NEUPOGEN [Suspect]
     Indication: PERIPHERAL BLOOD STEM CELL APHERESIS
     Dates: start: 20090716, end: 20090720

REACTIONS (5)
  - EAR PAIN [None]
  - HEADACHE [None]
  - INFLAMMATION [None]
  - NECK PAIN [None]
  - ODYNOPHAGIA [None]
